FAERS Safety Report 17031940 (Version 1)
Quarter: 2019Q4

REPORT INFORMATION
  Report Type: Spontaneous
  Country: US (occurrence: US)
  Receive Date: 20191114
  Receipt Date: 20191114
  Transmission Date: 20200122
  Serious: No
  Sender: FDA-Public Use
  Company Number: US-BAUSCH-BL-2019-058399

PATIENT
  Sex: Male

DRUGS (1)
  1. FLUOROURACIL. [Suspect]
     Active Substance: FLUOROURACIL
     Indication: PRODUCT USED FOR UNKNOWN INDICATION
     Dosage: 40 GRAMS, APPLIED TO SKIN
     Route: 061

REACTIONS (4)
  - Ill-defined disorder [Unknown]
  - Drug ineffective [Unknown]
  - Application site rash [Unknown]
  - Pain [Unknown]
